FAERS Safety Report 6697667-4 (Version None)
Quarter: 2010Q2

REPORT INFORMATION
  Report Type: 
  Country: None (occurrence: None)
  Receive Date: 20100423
  Receipt Date: 20100412
  Transmission Date: 20101027
  Serious: Yes (Hospitalization)
  Sender: FDA-Public Use
  Company Number: 232130J10USA

PATIENT
  Age: 50 Year
  Sex: Female
  Weight: 77 kg

DRUGS (4)
  1. REBIF [Suspect]
     Indication: MULTIPLE SCLEROSIS
     Dosage: 44 MCG, 3 IN 1 WK, SUBCUTANEOUS
     Route: 058
     Dates: start: 20091204
  2. BACLOFEN [Concomitant]
  3. CYMBALTA [Concomitant]
  4. . [Concomitant]

REACTIONS (2)
  - DEHYDRATION [None]
  - PNEUMONIA [None]
